FAERS Safety Report 24378637 (Version 1)
Quarter: 2024Q3

REPORT INFORMATION
  Report Type: Report from Study
  Country: CA (occurrence: CA)
  Receive Date: 20240930
  Receipt Date: 20240930
  Transmission Date: 20241017
  Serious: Yes (Other)
  Sender: SAMSUNG BIOEPIS
  Company Number: CA-SAMSUNG BIOEPIS-SB-2024-27980

PATIENT
  Age: 44 Year
  Sex: Male

DRUGS (1)
  1. RENFLEXIS [Suspect]
     Active Substance: INFLIXIMAB-ABDA
     Indication: Hidradenitis
     Dates: start: 20240117

REACTIONS (5)
  - Lower respiratory tract infection [Unknown]
  - Malaise [Not Recovered/Not Resolved]
  - Productive cough [Not Recovered/Not Resolved]
  - Lethargy [Not Recovered/Not Resolved]
  - Off label use [Unknown]

NARRATIVE: CASE EVENT DATE: 20240901
